FAERS Safety Report 7001516-4 (Version None)
Quarter: 2010Q3

REPORT INFORMATION
  Report Type: 
  Country: None (occurrence: None)
  Receive Date: 20100920
  Receipt Date: 20100908
  Transmission Date: 20110219
  Serious: Yes (Other)
  Sender: FDA-Public Use
  Company Number: US-SANOFI-AVENTIS-2010SA054803

PATIENT
  Age: 48 Year
  Sex: Female

DRUGS (3)
  1. LOVENOX [Suspect]
     Indication: DEEP VEIN THROMBOSIS
     Route: 058
     Dates: start: 20100727, end: 20100907
  2. WARFARIN SODIUM [Suspect]
     Route: 048
     Dates: start: 20100801
  3. WARFARIN SODIUM [Suspect]
     Route: 048
     Dates: start: 20100101

REACTIONS (8)
  - ABDOMINAL DISTENSION [None]
  - ABDOMINAL PAIN [None]
  - ABDOMINAL TENDERNESS [None]
  - INCORRECT ROUTE OF DRUG ADMINISTRATION [None]
  - INJECTION SITE PAIN [None]
  - INTERNATIONAL NORMALISED RATIO INCREASED [None]
  - INTRA-ABDOMINAL PRESSURE INCREASED [None]
  - PROTHROMBIN TIME PROLONGED [None]
